FAERS Safety Report 10732935 (Version 3)
Quarter: 2015Q4

REPORT INFORMATION
  Report Type: Report from Study
  Country: CO (occurrence: CO)
  Receive Date: 20150123
  Receipt Date: 20151113
  Transmission Date: 20160304
  Serious: Yes (Death, Hospitalization)
  Sender: FDA-Public Use
  Company Number: CO-ABBVIE-15K-036-1336093-00

PATIENT
  Age: 61 Year
  Sex: Female
  Weight: 74 kg

DRUGS (1)
  1. HUMIRA [Suspect]
     Active Substance: ADALIMUMAB
     Indication: COLITIS ULCERATIVE
     Route: 058
     Dates: start: 20130516, end: 20150121

REACTIONS (12)
  - Gastrointestinal disorder [Recovering/Resolving]
  - Abdominal pain [Recovering/Resolving]
  - Decreased appetite [Recovering/Resolving]
  - Mucous stools [Recovering/Resolving]
  - Large intestinal obstruction [Recovering/Resolving]
  - Abdominal distension [Recovering/Resolving]
  - Cardiac arrest [Fatal]
  - Frequent bowel movements [Recovering/Resolving]
  - Haematochezia [Recovering/Resolving]
  - Colon cancer metastatic [Recovering/Resolving]
  - Large intestinal stenosis [Recovering/Resolving]
  - Respiratory distress [Fatal]

NARRATIVE: CASE EVENT DATE: 20150104
